FAERS Safety Report 7343956-X (Version None)
Quarter: 2011Q1

REPORT INFORMATION
  Report Type: 
  Country: None (occurrence: None)
  Receive Date: 20110310
  Receipt Date: 20100225
  Transmission Date: 20110831
  Serious: No
  Sender: FDA-Public Use
  Company Number: A0846923A

PATIENT
  Age: 63 Year
  Sex: Female

DRUGS (2)
  1. NICORETTE [Suspect]
  2. ANTIDEPRESSANTS [Concomitant]

REACTIONS (1)
  - DEPRESSION [None]
